FAERS Safety Report 4640747-5 (Version None)
Quarter: 2005Q1

REPORT INFORMATION
  Report Type: 
  Country: None (occurrence: None)
  Receive Date: 20050322
  Receipt Date: 20040701
  Transmission Date: 20050727
  Serious: Yes (Hospitalization)
  Sender: FDA-Public Use
  Company Number: HQWYE865202JUL04

PATIENT
  Age: 85 Year
  Sex: Female

DRUGS (7)
  1. PROTONIX [Suspect]
     Dosage: 40 MG 1X PER 1 DAY, ORAL
     Route: 048
  2. LOVENOX [Suspect]
     Dosage: 60 MG 2X PER 1 DAY
  3. NOREPINEPHRINE (NOREPINEPHRINE) [Concomitant]
  4. DOBUTAMINE (DOBUTAMINE) [Concomitant]
  5. ALDACTONE [Concomitant]
  6. AMIODARONE HCL [Concomitant]
  7. CORTEF [Concomitant]

REACTIONS (1)
  - THROMBOCYTOPENIA [None]
